FAERS Safety Report 26041485 (Version 1)
Quarter: 2025Q4

REPORT INFORMATION
  Report Type: Spontaneous
  Country: US (occurrence: None)
  Receive Date: 20251113
  Receipt Date: 20251113
  Transmission Date: 20260118
  Serious: Yes (Hospitalization)
  Sender: FDA-CTU
  Company Number: None

PATIENT
  Sex: Female

DRUGS (4)
  1. VYNDAMAX [Suspect]
     Active Substance: TAFAMIDIS
     Indication: Amyloidosis
     Dosage: TAKE 1 CAPSULE (61 MG) BY MOUTH DAILY
     Dates: start: 20250726
  2. ASPIRIN [Concomitant]
     Active Substance: ASPIRIN
  3. LORAZEPAM [Concomitant]
     Active Substance: LORAZEPAM
  4. NITROGL YCERN [Concomitant]

REACTIONS (3)
  - Dyspnoea [None]
  - Dyspnoea exertional [None]
  - Chest pain [None]
